FAERS Safety Report 18611130 (Version 1)
Quarter: 2020Q4

REPORT INFORMATION
  Report Type: Spontaneous
  Country: US (occurrence: US)
  Receive Date: 20201214
  Receipt Date: 20201214
  Transmission Date: 20210114
  Serious: Yes (Other)
  Sender: FDA-Public Use
  Company Number: US-PFIZER INC-2020488021

PATIENT
  Age: 61 Year
  Sex: Female
  Weight: 83.9 kg

DRUGS (1)
  1. INLYTA [Suspect]
     Active Substance: AXITINIB
     Indication: RENAL CELL CARCINOMA
     Dosage: 5 MG, CYCLIC (TAKE 1 TABLET TWICE A DAY MONDAY THROUGH FRIDAY, HOLD SATURDAY AND SUNDAY)
     Route: 048
     Dates: start: 20200311

REACTIONS (19)
  - Dysphagia [Recovering/Resolving]
  - Pain in extremity [Unknown]
  - Gait disturbance [Unknown]
  - Decreased appetite [Unknown]
  - Myalgia [Recovered/Resolved]
  - Oral pain [Recovered/Resolved]
  - Hypertension [Recovering/Resolving]
  - Pharyngeal swelling [Unknown]
  - Feeling abnormal [Unknown]
  - Feeding disorder [Recovering/Resolving]
  - Weight decreased [Recovering/Resolving]
  - Diarrhoea [Unknown]
  - Dysphonia [Unknown]
  - Epistaxis [Unknown]
  - Fatigue [Unknown]
  - Cough [Unknown]
  - Hyperthyroidism [Recovering/Resolving]
  - Nausea [Unknown]
  - Dry throat [Unknown]

NARRATIVE: CASE EVENT DATE: 2020
